FAERS Safety Report 8605923-5 (Version None)
Quarter: 2012Q3

REPORT INFORMATION
  Report Type: 
  Country: None (occurrence: None)
  Receive Date: 20120807
  Receipt Date: 20120724
  Transmission Date: 20120928
  Serious: Yes (Death, Hospitalization)
  Sender: FDA-Public Use
  Company Number: DSJ-2012-13568

PATIENT
  Age: 9 Decade
  Sex: Male

DRUGS (5)
  1. AMLODIPINE BESYLATE AND OLMESARTAN MEDOXOMIL [Suspect]
     Indication: HYPERTENSION
     Dosage: 20/5 MG (1 IN 1 D), PER ORAL
     Route: 048
     Dates: start: 20090101, end: 20120706
  2. ATORVASTATIN [Concomitant]
  3. METOPROLOL TARTRATE [Concomitant]
  4. CILOSTAZOL [Concomitant]
  5. MEMANTINE HCL [Concomitant]

REACTIONS (2)
  - VOMITING [None]
  - INFECTION [None]
